FAERS Safety Report 24572836 (Version 1)
Quarter: 2024Q4

REPORT INFORMATION
  Report Type: Spontaneous
  Country: US (occurrence: None)
  Receive Date: 20241101
  Receipt Date: 20241101
  Transmission Date: 20250115
  Serious: Yes (Hospitalization)
  Sender: Public
  Company Number: None

PATIENT
  Age: 21 Year
  Sex: Female
  Weight: 52 kg

DRUGS (1)
  1. ELURYNG [Suspect]
     Active Substance: ETHINYL ESTRADIOL\ETONOGESTREL
     Route: 067

REACTIONS (6)
  - Complication associated with device [None]
  - Vulvovaginal injury [None]
  - Vaginal haemorrhage [None]
  - Haemoglobin decreased [None]
  - Thrombosis [None]
  - Injury [None]

NARRATIVE: CASE EVENT DATE: 20241101
